FAERS Safety Report 4701508-1 (Version None)
Quarter: 2005Q2

REPORT INFORMATION
  Report Type: 
  Country: None (occurrence: None)
  Receive Date: 20050627
  Receipt Date: 20050613
  Transmission Date: 20051028
  Serious: No
  Sender: FDA-Public Use
  Company Number: 31615

PATIENT
  Sex: Male

DRUGS (2)
  1. BRINZOLAMIDE 1% SUSPENSION [Suspect]
     Indication: GLAUCOMA
     Dosage: OPHT
     Route: 047
     Dates: start: 20050602, end: 20050610
  2. TIMOLOL MALEATE [Suspect]
     Indication: GLAUCOMA
     Route: 047
     Dates: start: 20050602, end: 20050610

REACTIONS (2)
  - DIALYSIS [None]
  - TRANSPLANT FAILURE [None]
